FAERS Safety Report 12746700 (Version 3)
Quarter: 2018Q1

REPORT INFORMATION
  Report Type: Spontaneous
  Country: US (occurrence: US)
  Receive Date: 20160915
  Receipt Date: 20180207
  Transmission Date: 20180508
  Serious: No
  Sender: FDA-Public Use
  Company Number: US-JAZZ-2016-US-015863

PATIENT
  Age: 49 Year
  Sex: Female
  Weight: 116.1 kg

DRUGS (10)
  1. PRIALT [Suspect]
     Active Substance: ZICONOTIDE ACETATE
     Indication: PAIN
     Dosage: UNK ?G, QH
     Route: 037
     Dates: start: 20160513
  2. PRIALT [Suspect]
     Active Substance: ZICONOTIDE ACETATE
     Dosage: 0.146 ?G, QH
     Route: 037
     Dates: start: 20160607, end: 2016
  3. BACLOFEN. [Concomitant]
     Active Substance: BACLOFEN
  4. CEFDINIR. [Concomitant]
     Active Substance: CEFDINIR
  5. SINGULAIR [Concomitant]
     Active Substance: MONTELUKAST SODIUM
  6. PRIALT [Suspect]
     Active Substance: ZICONOTIDE ACETATE
     Dosage: 0.104 ?G, QH
     Route: 037
  7. EFFEXOR [Concomitant]
     Active Substance: VENLAFAXINE HYDROCHLORIDE
  8. BROMPHENIRAMINE MALEATE. [Concomitant]
     Active Substance: BROMPHENIRAMINE MALEATE
  9. PRIALT [Suspect]
     Active Substance: ZICONOTIDE ACETATE
     Dosage: 0.23 ?G, QH
     Route: 037
     Dates: end: 20160607
  10. GEMFIBROZIL. [Concomitant]
     Active Substance: GEMFIBROZIL

REACTIONS (9)
  - Disorientation [Unknown]
  - Drug withdrawal syndrome [Unknown]
  - Blood urine present [Not Recovered/Not Resolved]
  - Aphasia [Unknown]
  - Anxiety [Unknown]
  - Therapeutic response decreased [Unknown]
  - Nervous system disorder [Unknown]
  - Device issue [Recovered/Resolved]
  - Malaise [Unknown]

NARRATIVE: CASE EVENT DATE: 20160325
